FAERS Safety Report 18582903 (Version 2)
Quarter: 2021Q2

REPORT INFORMATION
  Report Type: Spontaneous
  Country: US (occurrence: US)
  Receive Date: 20201204
  Receipt Date: 20210409
  Transmission Date: 20210717
  Serious: Yes (Other)
  Sender: FDA-Public Use
  Company Number: US-BIOCODEX SA-202001439

PATIENT

DRUGS (6)
  1. DIACOMIT [Suspect]
     Active Substance: STIRIPENTOL
     Dosage: 1000 MILLIGRAM EVERY 1 DAY(S) 250MG 2, TWICE A DAY
     Route: 048
  2. VIGABATRIN. [Concomitant]
     Active Substance: VIGABATRIN
     Indication: PRODUCT USED FOR UNKNOWN INDICATION
     Route: 065
  3. DIACOMIT [Suspect]
     Active Substance: STIRIPENTOL
     Indication: EPILEPSY
     Dosage: 250MG, DILUTE IN 10ML WATER. HE RECEIVED 225MG (9ML) BY MOUTH TWICE A DAY
     Route: 048
     Dates: start: 20200814
  4. BANZEL [Concomitant]
     Active Substance: RUFINAMIDE
     Indication: PRODUCT USED FOR UNKNOWN INDICATION
     Route: 065
  5. CLOBAZAM. [Concomitant]
     Active Substance: CLOBAZAM
     Indication: SEVERE MYOCLONIC EPILEPSY OF INFANCY
     Route: 065
  6. FELBAMATE. [Concomitant]
     Active Substance: FELBAMATE
     Indication: PRODUCT USED FOR UNKNOWN INDICATION

REACTIONS (3)
  - Seizure [Unknown]
  - Fatigue [Unknown]
  - Product use in unapproved indication [Unknown]
